FAERS Safety Report 5481774-8 (Version None)
Quarter: 2007Q4

REPORT INFORMATION
  Report Type: 
  Country: None (occurrence: None)
  Receive Date: 20071010
  Receipt Date: 20071004
  Transmission Date: 20080405
  Serious: Yes (Death)
  Sender: FDA-Public Use
  Company Number: US-SANOFI-SYNTHELABO-A03200702514

PATIENT
  Sex: Female
  Weight: 63.5 kg

DRUGS (4)
  1. AMBIEN [Suspect]
     Indication: INSOMNIA
     Dosage: EVERY THIRD NIGHT
     Route: 048
  2. AMBIEN [Suspect]
     Dosage: 12.5 MG EVERY THIRD NIGHT
     Route: 048
  3. GABAPENTIN [Suspect]
     Indication: DRUG USE FOR UNKNOWN INDICATION
     Dosage: UNK
     Route: 048
  4. HYDROCODONE BITARTRATE AND ACETAMINOPHEN [Suspect]
     Indication: DRUG USE FOR UNKNOWN INDICATION
     Dosage: 10MG/350MG AND 5MG/500MG
     Route: 048

REACTIONS (5)
  - BURNS SECOND DEGREE [None]
  - CARDIAC ARREST [None]
  - COMA [None]
  - HYPERTHERMIA MALIGNANT [None]
  - SOMNOLENCE [None]
